FAERS Safety Report 8720296 (Version 2)
Quarter: 2013Q4

REPORT INFORMATION
  Report Type: Spontaneous
  Country: US (occurrence: US)
  Receive Date: 20120813
  Receipt Date: 20131101
  Transmission Date: 20140711
  Serious: Yes (Hospitalization)
  Sender: FDA-Public Use
  Company Number: US-009507513-1208USA003530

PATIENT
  Age: 72 Year
  Sex: Male

DRUGS (7)
  1. INTEGRILIN [Suspect]
     Indication: ACUTE CORONARY SYNDROME
     Dosage: UNK
     Route: 065
     Dates: start: 20120606, end: 20120606
  2. ZOCOR [Concomitant]
  3. ANGIOMAX [Concomitant]
  4. PLAVEX [Concomitant]
  5. ASPIRIN [Concomitant]
  6. PEPCID [Concomitant]
  7. LOPRESSOR [Concomitant]

REACTIONS (1)
  - Thrombocytopenia [Recovered/Resolved]
